FAERS Safety Report 14320595 (Version 1)
Quarter: 2017Q4

REPORT INFORMATION
  Report Type: Report from Study
  Country: None (occurrence: GR)
  Receive Date: 20171222
  Receipt Date: 20171222
  Transmission Date: 20180321
  Serious: Yes (Death)
  Sender: FDA-Public Use
  Company Number: GR-ABBVIE-17K-066-2203259-00

PATIENT
  Sex: Male

DRUGS (3)
  1. DUODOPA [Suspect]
     Active Substance: CARBIDOPA\LEVODOPA
     Indication: PARKINSON^S DISEASE
     Dosage: MORNING DOSE:7.3ML; CONTINUOUS RATE:1.8ML/H; EXTRA DOSE:1.4ML (0-1 TIMES PER DAY)
     Route: 050
     Dates: start: 20161101
  2. DUMYROX [Concomitant]
     Active Substance: FLUVOXAMINE
     Indication: DEPRESSION
     Route: 048
  3. EXELON [Concomitant]
     Active Substance: RIVASTIGMINE TARTRATE
     Indication: DEMENTIA
     Route: 048

REACTIONS (2)
  - Septic shock [Fatal]
  - Multiple organ dysfunction syndrome [Fatal]
